FAERS Safety Report 14115210 (Version 2)
Quarter: 2017Q4

REPORT INFORMATION
  Report Type: Report from Study
  Country: JP (occurrence: JP)
  Receive Date: 20171023
  Receipt Date: 20171107
  Transmission Date: 20180321
  Serious: Yes (Hospitalization)
  Sender: FDA-Public Use
  Company Number: JP-EISAI MEDICAL RESEARCH-EC-2017-032290

PATIENT
  Age: 45 Year
  Sex: Male
  Weight: 59 kg

DRUGS (9)
  1. FYCOMPA [Suspect]
     Active Substance: PERAMPANEL
     Route: 048
     Dates: start: 20170707, end: 20170809
  2. FYCOMPA [Suspect]
     Active Substance: PERAMPANEL
     Route: 048
     Dates: start: 20170810, end: 20170914
  3. E KEPPRA [Concomitant]
     Active Substance: LEVETIRACETAM
  4. FYCOMPA [Suspect]
     Active Substance: PERAMPANEL
     Route: 048
     Dates: start: 20170915
  5. FYCOMPA [Suspect]
     Active Substance: PERAMPANEL
     Indication: PARTIAL SEIZURES
     Route: 048
     Dates: start: 20170512, end: 20170606
  6. LAMICTAL [Concomitant]
     Active Substance: LAMOTRIGINE
  7. PYDOXAL [Concomitant]
     Active Substance: PYRIDOXAL
  8. FYCOMPA [Suspect]
     Active Substance: PERAMPANEL
     Route: 048
     Dates: start: 20170607, end: 20170706
  9. RISPERDAL [Concomitant]
     Active Substance: RISPERIDONE

REACTIONS (1)
  - Epileptic psychosis [Recovered/Resolved]

NARRATIVE: CASE EVENT DATE: 20170607
